FAERS Safety Report 4532802-5 (Version None)
Quarter: 2004Q4

REPORT INFORMATION
  Report Type: 
  Country: None (occurrence: None)
  Receive Date: 20041220
  Receipt Date: 20041209
  Transmission Date: 20050328
  Serious: Yes (Other)
  Sender: FDA-Public Use
  Company Number: 2004107050

PATIENT
  Sex: Female
  Weight: 45.3597 kg

DRUGS (1)
  1. LISTERINE (MENTHOL, METHYL SALICYLATE, EUCALYPTOL, THYMOL) [Suspect]
     Indication: DENTAL DISORDER PROPHYLAXIS
     Dosage: 1/2 CAPFUL TID, ORAL TOPICAL
     Route: 061

REACTIONS (4)
  - GALLBLADDER OPERATION [None]
  - GINGIVAL PAIN [None]
  - POSTOPERATIVE HERNIA [None]
  - WOUND DEHISCENCE [None]
